FAERS Safety Report 4777270-3 (Version None)
Quarter: 2005Q3

REPORT INFORMATION
  Report Type: 
  Country: None (occurrence: None)
  Receive Date: 20050915
  Receipt Date: 20050830
  Transmission Date: 20060218
  Serious: Yes (Death)
  Sender: FDA-Public Use
  Company Number: ABFLM-05-0366

PATIENT
  Age: 68 Year
  Sex: Female
  Weight: 55.7924 kg

DRUGS (4)
  1. ABRAXANE [Suspect]
     Indication: BREAST CANCER METASTATIC
     Dosage: (400 MG, EVERY 3 WEEKS), INTRAVENOUS DRIP
     Route: 041
     Dates: start: 20050816, end: 20050816
  2. ACIPHEX [Concomitant]
  3. CELEBREX [Concomitant]
  4. HYDROCHLOROTHIAZIDE [Concomitant]

REACTIONS (15)
  - APHASIA [None]
  - ARTHRALGIA [None]
  - BLOOD CULTURE POSITIVE [None]
  - ESCHERICHIA INFECTION [None]
  - HAEMATOCRIT DECREASED [None]
  - HAEMOGLOBIN DECREASED [None]
  - LETHARGY [None]
  - LISTERIOSIS [None]
  - NEUTROPENIA [None]
  - RED BLOOD CELL COUNT DECREASED [None]
  - RENAL FAILURE [None]
  - RHABDOMYOLYSIS [None]
  - SEPTIC SHOCK [None]
  - STOMATITIS [None]
  - THROMBOCYTOPENIA [None]
